FAERS Safety Report 7868727-7 (Version None)
Quarter: 2011Q4

REPORT INFORMATION
  Report Type: 
  Country: None (occurrence: None)
  Receive Date: 20111026
  Receipt Date: 20111026
  Transmission Date: 20120403
  Serious: Yes (Hospitalization)
  Sender: FDA-Public Use
  Company Number: None

PATIENT
  Sex: Female
  Weight: 78.1 kg

DRUGS (1)
  1. CISPLATIN [Suspect]
     Dosage: 190 MG
     Dates: end: 20080304

REACTIONS (1)
  - PERIPHERAL SENSORIMOTOR NEUROPATHY [None]
